FAERS Safety Report 8810196 (Version 1)
Quarter: 2012Q4

REPORT INFORMATION
  Report Type: 
  Country: US (occurrence: US)
  Receive Date: 20120926
  Receipt Date: 20120926
  Transmission Date: 20130627
  Serious: No
  Sender: FDA-Public Use
  Company Number: US-009507513-1209USA009206

PATIENT
  Age: 64 Year
  Sex: Female

DRUGS (2)
  1. JANUMET [Suspect]
     Indication: DIABETES MELLITUS
     Dosage: 50/1000, split in half, unspecified frequency
     Route: 048
  2. LEVOFLOXACIN [Concomitant]

REACTIONS (4)
  - Feeling abnormal [Not Recovered/Not Resolved]
  - Nausea [Not Recovered/Not Resolved]
  - Medication residue [Not Recovered/Not Resolved]
  - Wrong technique in drug usage process [Unknown]
